FAERS Safety Report 19509051 (Version 1)
Quarter: 2021Q3

REPORT INFORMATION
  Report Type: Spontaneous
  Country: US (occurrence: US)
  Receive Date: 20210709
  Receipt Date: 20210709
  Transmission Date: 20211014
  Serious: No
  Sender: FDA-Public Use
  Company Number: US-ASTRAZENECA-2021A545505

PATIENT
  Age: 812 Month
  Sex: Male
  Weight: 108 kg

DRUGS (1)
  1. BYDUREON BCISE [Suspect]
     Active Substance: EXENATIDE
     Indication: TYPE 2 DIABETES MELLITUS
     Route: 058
     Dates: start: 202101

REACTIONS (4)
  - Device defective [Unknown]
  - Wrong technique in device usage process [Unknown]
  - Injection site extravasation [Unknown]
  - Product use issue [Unknown]

NARRATIVE: CASE EVENT DATE: 202102
